FAERS Safety Report 14259585 (Version 1)
Quarter: 2017Q4

REPORT INFORMATION
  Report Type: Spontaneous
  Country: AU (occurrence: AU)
  Receive Date: 20171207
  Receipt Date: 20171207
  Transmission Date: 20180321
  Serious: Yes (Other)
  Sender: FDA-Public Use
  Company Number: AU-GILEAD-2017-0307729

PATIENT
  Age: 53 Year
  Sex: Female

DRUGS (2)
  1. EPCLUSA [Suspect]
     Active Substance: SOFOSBUVIR\VELPATASVIR
     Indication: HEPATITIS C
     Dosage: 1 DF, QD
     Route: 048
     Dates: start: 20171122, end: 20171123
  2. CANNABIS SATIVA OIL [Concomitant]
     Active Substance: CANNABIS SATIVA SUBSP. INDICA TOP
     Indication: EPILEPSY
     Dosage: UNK

REACTIONS (19)
  - Swelling face [Recovered/Resolved]
  - Headache [Recovered/Resolved]
  - Pharyngeal oedema [Recovered/Resolved]
  - Throat irritation [Recovered/Resolved]
  - Oral disorder [Recovered/Resolved]
  - Speech disorder [Recovered/Resolved]
  - Anxiety [Unknown]
  - Respiratory tract oedema [Recovered/Resolved]
  - Mouth ulceration [Recovered/Resolved]
  - Nausea [Recovered/Resolved]
  - Diarrhoea [Not Recovered/Not Resolved]
  - Hypoaesthesia [Recovered/Resolved]
  - Bronchospasm [Recovered/Resolved]
  - Lip swelling [Recovered/Resolved]
  - Abdominal discomfort [Recovered/Resolved]
  - Thirst [Not Recovered/Not Resolved]
  - Dyspnoea [Recovered/Resolved]
  - Eructation [Recovered/Resolved]
  - Dysphagia [Recovered/Resolved]

NARRATIVE: CASE EVENT DATE: 20171122
